FAERS Safety Report 9717336 (Version 1)
Quarter: 2013Q4

REPORT INFORMATION
  Report Type: Spontaneous
  Country: GB (occurrence: None)
  Receive Date: 20131125
  Receipt Date: 20131125
  Transmission Date: 20140711
  Serious: Yes (Life-Threatening, Other)
  Sender: FDA-Public Use
  Company Number: AUR-APL-2013-09716

PATIENT
  Age: 68 Year
  Sex: Male

DRUGS (5)
  1. ALENDRONIC ACID [Suspect]
     Indication: OSTEOPOROSIS PROPHYLAXIS
     Route: 048
  2. ASPIRIN (ACETYLSALICYLIC ACID) [Concomitant]
  3. FOLIC ACID (FOLIC ACID) [Concomitant]
  4. METHOTREXATE (METHOTREXATE) [Concomitant]
  5. PREDNISOLONE (PREDNISOLONE) [Concomitant]

REACTIONS (8)
  - Chemical burn of respiratory tract [None]
  - Choking [None]
  - Dysphonia [None]
  - Foreign body [None]
  - Epiglottis ulcer [None]
  - Laryngeal oedema [None]
  - Laryngeal ulceration [None]
  - Epiglottitis [None]
